FAERS Safety Report 14650220 (Version 3)
Quarter: 2018Q2

REPORT INFORMATION
  Report Type: Spontaneous
  Country: US (occurrence: US)
  Receive Date: 20180316
  Receipt Date: 20180404
  Transmission Date: 20180711
  Serious: Yes (Other)
  Sender: FDA-Public Use
  Company Number: US-IMPAX LABORATORIES, INC-2018-IPXL-00823

PATIENT
  Age: 87 Year
  Sex: Male
  Weight: 70 kg

DRUGS (3)
  1. RYTARY [Suspect]
     Active Substance: CARBIDOPA\LEVODOPA
     Indication: PARKINSON^S DISEASE
     Dosage: 61.25/245 MG, 2 CAPSULES, QID
     Route: 048
  2. RYTARY [Suspect]
     Active Substance: CARBIDOPA\LEVODOPA
     Dosage: 61.25MG/245MG TWO CAPSULES FOUR TIMES DAILY AND 23.75/95 MG AS NEEDED.
     Route: 048
  3. SINEMET [Concomitant]
     Active Substance: CARBIDOPA\LEVODOPA
     Indication: PARKINSON^S DISEASE
     Dosage: UNK
     Route: 065

REACTIONS (3)
  - Tremor [Unknown]
  - Depression [Unknown]
  - Skin cancer [Recovered/Resolved]

NARRATIVE: CASE EVENT DATE: 20180311
